FAERS Safety Report 8186783-6 (Version None)
Quarter: 2012Q1

REPORT INFORMATION
  Report Type: 
  Country: None (occurrence: None)
  Receive Date: 20120306
  Receipt Date: 20120306
  Transmission Date: 20120608
  Serious: Yes (Life-Threatening)
  Sender: FDA-Public Use
  Company Number: None

PATIENT
  Age: 50 Year
  Sex: Female
  Weight: 113.39 kg

DRUGS (1)
  1. CITALOPRAM HYDROBROMIDE [Suspect]
     Indication: ANXIETY
     Dosage: 20.0 MG
     Route: 048
     Dates: start: 20110309, end: 20110311

REACTIONS (7)
  - SYNCOPE [None]
  - ANXIETY [None]
  - TREMOR [None]
  - PALPITATIONS [None]
  - FEAR [None]
  - ASTHENIA [None]
  - DIZZINESS [None]
